FAERS Safety Report 8375221-6 (Version None)
Quarter: 2012Q2

REPORT INFORMATION
  Report Type: 
  Country: None (occurrence: None)
  Receive Date: 20120522
  Receipt Date: 20120509
  Transmission Date: 20120825
  Serious: Yes (Other)
  Sender: FDA-Public Use
  Company Number: FR-BRISTOL-MYERS SQUIBB COMPANY-16583320

PATIENT
  Age: 74 Year
  Sex: Female

DRUGS (2)
  1. CARTREX [Concomitant]
     Indication: PAIN
  2. ORENCIA [Suspect]
     Indication: RHEUMATOID ARTHRITIS
     Dosage: DISCONTINUED ON: 22DEC2011 RESTARTED ON:  27MAR2012
     Dates: start: 20081016

REACTIONS (2)
  - MACULAR FIBROSIS [None]
  - HERPES ZOSTER [None]
